FAERS Safety Report 8874441 (Version 1)
Quarter: 2012Q4

REPORT INFORMATION
  Report Type: 
  Country: US (occurrence: US)
  Receive Date: 20121030
  Receipt Date: 20121030
  Transmission Date: 20130627
  Serious: Yes (Other)
  Sender: FDA-Public Use
  Company Number: US-PFIZER INC-2012264307

PATIENT
  Age: 69 Year
  Sex: Male
  Weight: 77.1 kg

DRUGS (3)
  1. AZITHROMYCIN [Suspect]
     Indication: LUNG INFECTION
     Dosage: 250 mg, 2x/day
     Route: 048
     Dates: start: 20121015, end: 20121016
  2. AZITHROMYCIN [Suspect]
     Indication: DYSPNOEA
     Dosage: 250 mg, 1x/day
     Route: 048
     Dates: start: 20121016, end: 20121021
  3. LASIX [Concomitant]
     Indication: HYPERTENSION
     Dosage: UNK

REACTIONS (1)
  - Drug ineffective [Not Recovered/Not Resolved]
